FAERS Safety Report 7101106-9 (Version None)
Quarter: 2010Q4

REPORT INFORMATION
  Report Type: 
  Country: None (occurrence: None)
  Receive Date: 20101113
  Receipt Date: 20100503
  Transmission Date: 20110411
  Serious: Yes (Other)
  Sender: FDA-Public Use
  Company Number: US-ALLERGAN-1005619US

PATIENT
  Age: 72 Year
  Sex: Female

DRUGS (2)
  1. BOTOXA? [Suspect]
     Indication: TORTICOLLIS
     Dosage: 175 UNITS, SINGLE
     Dates: start: 20100304, end: 20100304
  2. SYNTHROID [Concomitant]
     Indication: THYROID DISORDER

REACTIONS (3)
  - FEELING ABNORMAL [None]
  - MUSCLE STRAIN [None]
  - MUSCULAR WEAKNESS [None]
